FAERS Safety Report 4909398-9 (Version None)
Quarter: 2006Q1

REPORT INFORMATION
  Report Type: 
  Country: None (occurrence: None)
  Receive Date: 20060208
  Receipt Date: 20060130
  Transmission Date: 20060701
  Serious: Yes (Other)
  Sender: FDA-Public Use
  Company Number: 2006015154

PATIENT
  Sex: 0

DRUGS (4)
  1. LIPITOR [Suspect]
     Indication: ILL-DEFINED DISORDER
  2. TEGRETOL [Suspect]
     Indication: ILL-DEFINED DISORDER
  3. LAMICTAL [Suspect]
     Indication: ILL-DEFINED DISORDER
  4. TOPAMAX [Suspect]
     Indication: ILL-DEFINED DISORDER

REACTIONS (1)
  - GRAND MAL CONVULSION [None]
